FAERS Safety Report 6340753-9 (Version None)
Quarter: 2009Q3

REPORT INFORMATION
  Report Type: 
  Country: None (occurrence: None)
  Receive Date: 20090904
  Receipt Date: 20090902
  Transmission Date: 20100115
  Serious: Yes (Hospitalization)
  Sender: FDA-Public Use
  Company Number: AR-BRISTOL-MYERS SQUIBB COMPANY-14763916

PATIENT
  Age: 56 Year
  Sex: Male

DRUGS (4)
  1. ABATACEPT [Suspect]
     Indication: RHEUMATOID ARTHRITIS
     Route: 058
     Dates: start: 20090401, end: 20090827
  2. METHOTREXATE [Suspect]
     Indication: RHEUMATOID ARTHRITIS
     Dates: start: 20050201
  3. ENALAPRIL MALEATE [Concomitant]
     Dates: start: 20081027
  4. MEPREDNISONE [Concomitant]
     Dates: start: 20090625

REACTIONS (1)
  - VENOUS THROMBOSIS [None]
